FAERS Safety Report 19693240 (Version 1)
Quarter: 2021Q3

REPORT INFORMATION
  Report Type: Spontaneous
  Country: US (occurrence: US)
  Receive Date: 20210812
  Receipt Date: 20210812
  Transmission Date: 20211014
  Serious: Yes (Hospitalization)
  Sender: FDA-Public Use
  Company Number: US-LUPIN PHARMACEUTICALS INC.-2021-14483

PATIENT
  Age: 16 Year
  Sex: Male

DRUGS (15)
  1. DEXMEDETOMIDINE. [Concomitant]
     Active Substance: DEXMEDETOMIDINE
     Indication: AGGRESSION
  2. TRAZODONE [Suspect]
     Active Substance: TRAZODONE HYDROCHLORIDE
     Indication: AGITATION
     Dosage: 50 MILLIGRAM, QD (EVERY NIGHT AT BEDTIME)
     Route: 065
  3. ALPRAZOLAM. [Concomitant]
     Active Substance: ALPRAZOLAM
     Indication: ABNORMAL BEHAVIOUR
     Dosage: UNK (PILLS)
     Route: 065
  4. LORAZEPAM. [Suspect]
     Active Substance: LORAZEPAM
     Indication: AGITATION
     Dosage: UNK
     Route: 065
  5. CLONAZEPAM. [Suspect]
     Active Substance: CLONAZEPAM
     Indication: AGITATION
     Dosage: 3 MILLIGRAM, TID (THREE TIMES IN A DAY)
     Route: 065
  6. RITUXIMAB. [Concomitant]
     Active Substance: RITUXIMAB
     Indication: ENCEPHALITIS AUTOIMMUNE
     Dosage: UNK (FOUR INFUSIONS)
     Route: 065
  7. CLONAZEPAM. [Suspect]
     Active Substance: CLONAZEPAM
     Indication: SEDATION
  8. DEXMEDETOMIDINE. [Concomitant]
     Active Substance: DEXMEDETOMIDINE
     Indication: SEDATION
     Dosage: UNK  (CONTINUOUS INFUSION)
     Route: 065
  9. DEXMEDETOMIDINE. [Concomitant]
     Active Substance: DEXMEDETOMIDINE
     Indication: BEHAVIOUR DISORDER
  10. IMMUNE GLOBULIN [Concomitant]
     Indication: ENCEPHALITIS AUTOIMMUNE
     Dosage: UNK (FOR 3 DAYS)
     Route: 042
  11. HALOPERIDOL. [Suspect]
     Active Substance: HALOPERIDOL
     Indication: AGITATION
     Dosage: UNK
     Route: 065
  12. LACOSAMIDE. [Concomitant]
     Active Substance: LACOSAMIDE
     Indication: SEIZURE
     Dosage: 100 MILLIGRAM, BID
     Route: 065
  13. METHYLPREDNISOLONE. [Concomitant]
     Active Substance: METHYLPREDNISOLONE
     Indication: ENCEPHALITIS AUTOIMMUNE
     Dosage: UNK (MULTIPLE DOSES)
     Route: 042
  14. CHLORPROMAZINE. [Concomitant]
     Active Substance: CHLORPROMAZINE
     Indication: AGITATION
     Dosage: 25 MILLIGRAM, TID
     Route: 030
  15. QUETIAPINE FUMARATE. [Suspect]
     Active Substance: QUETIAPINE FUMARATE
     Indication: AGITATION
     Dosage: 700 MILLIGRAM, QD (TITRATED EVERY 2 DAYS TO A GOAL DOSE OF 700MG/DAY)
     Route: 065

REACTIONS (1)
  - Drug ineffective [Unknown]
